FAERS Safety Report 17665168 (Version 2)
Quarter: 2020Q2

REPORT INFORMATION
  Report Type: Spontaneous
  Country: US (occurrence: US)
  Receive Date: 20200414
  Receipt Date: 20200422
  Transmission Date: 20200713
  Serious: No
  Sender: FDA-Public Use
  Company Number: US-BAYER-2020-055862

PATIENT
  Age: 57 Year
  Sex: Male

DRUGS (1)
  1. AVELOX [Suspect]
     Active Substance: MOXIFLOXACIN HYDROCHLORIDE
     Indication: NEISSERIA INFECTION
     Dosage: 400 MG, QD

REACTIONS (4)
  - Paranoia [None]
  - Off label use [None]
  - Agitation [None]
  - Product use in unapproved indication [None]
